FAERS Safety Report 7364893-0 (Version None)
Quarter: 2011Q1

REPORT INFORMATION
  Report Type: 
  Country: None (occurrence: None)
  Receive Date: 20110316
  Receipt Date: 20110316
  Transmission Date: 20110831
  Serious: Yes (Hospitalization)
  Sender: FDA-Public Use
  Company Number: None

PATIENT
  Sex: Female
  Weight: 85.0948 kg

DRUGS (18)
  1. CRESTOR [Concomitant]
  2. PEPCID AC [Concomitant]
  3. TOBRAMYCIN [Concomitant]
  4. ONGLYZA [Concomitant]
  5. DEXAMETHASONE [Concomitant]
  6. PEMETREXED [Concomitant]
  7. EMEND TRIPACK [Concomitant]
  8. FOLIC ACID [Concomitant]
  9. VORINOSTAT [Suspect]
     Indication: LUNG ADENOCARCINOMA
     Dosage: 100 MG ONCE DAILY MON-WED-FRI ORAL
     Route: 048
     Dates: start: 20110107, end: 20110225
  10. CISPLATIN [Suspect]
     Indication: LUNG ADENOCARCINOMA
     Dosage: 75 MG/M^2 EVERY 21-DAYS X4 INTRAVENOUS DRIP
     Route: 041
     Dates: start: 20110110, end: 20110221
  11. BENICAR [Concomitant]
  12. BRYSTOLIC [Concomitant]
  13. VITAMIN B-12 [Concomitant]
  14. COMPAZINE [Concomitant]
  15. PERIO MED RINSE [Concomitant]
  16. CENTRUM SILVER, VITAMIN SUPPLEMENT [Concomitant]
  17. OXYCODONE [Concomitant]
  18. RADIATION THERAPY [Concomitant]

REACTIONS (6)
  - URINARY TRACT INFECTION [None]
  - VOMITING [None]
  - DEHYDRATION [None]
  - HYPOKALAEMIA [None]
  - NAUSEA [None]
  - ELECTROLYTE IMBALANCE [None]
